FAERS Safety Report 7957675-X (Version None)
Quarter: 2011Q4

REPORT INFORMATION
  Report Type: 
  Country: None (occurrence: None)
  Receive Date: 20111205
  Receipt Date: 20111128
  Transmission Date: 20120403
  Serious: Yes (Other)
  Sender: FDA-Public Use
  Company Number: PHHY2011BR104619

PATIENT
  Age: 57 Year
  Sex: Female

DRUGS (3)
  1. TEGRETOL [Suspect]
     Dosage: 300MG,3 TABLETS DAILY
     Route: 048
  2. PAMELOR [Concomitant]
     Indication: DEPRESSION
  3. TEGRETOL [Suspect]
     Dosage: 600MG, AND SPLIT THE TABLET IN A HALF

REACTIONS (2)
  - WRONG TECHNIQUE IN DRUG USAGE PROCESS [None]
  - PETIT MAL EPILEPSY [None]
